FAERS Safety Report 10566919 (Version 2)
Quarter: 2014Q4

REPORT INFORMATION
  Report Type: Spontaneous
  Country: CN (occurrence: CN)
  Receive Date: 20141105
  Receipt Date: 20141105
  Transmission Date: 20150529
  Serious: Yes (Hospitalization)
  Sender: FDA-Public Use
  Company Number: CN-GLAXOSMITHKLINE-CN2014GSK000497

PATIENT
  Age: 65 Year
  Sex: Male
  Weight: 120 kg

DRUGS (1)
  1. SERETIDE [Suspect]
     Active Substance: FLUTICASONE FUROATE\SALMETEROL XINAFOATE
     Indication: LUNG INFECTION
     Dosage: 1 UNK, BID
     Route: 055
     Dates: start: 201407, end: 20140910

REACTIONS (5)
  - Productive cough [Unknown]
  - Haemoptysis [Unknown]
  - Off label use [Unknown]
  - Product quality issue [Unknown]
  - Expired product administered [Unknown]

NARRATIVE: CASE EVENT DATE: 2014
